FAERS Safety Report 12714692 (Version 2)
Quarter: 2016Q3

REPORT INFORMATION
  Report Type: Report from Study
  Country: IN (occurrence: IN)
  Receive Date: 20160905
  Receipt Date: 20160913
  Transmission Date: 20161109
  Serious: Yes (Life-Threatening, Hospitalization)
  Sender: FDA-Public Use
  Company Number: IN-AMGEN-INDCT2016115938

PATIENT
  Age: 37 Year
  Sex: Female
  Weight: 62 kg

DRUGS (17)
  1. PANTOPRAZOLE [Concomitant]
     Active Substance: PANTOPRAZOLE SODIUM
     Indication: PROPHYLAXIS
     Dosage: 40 MG, UNK
     Dates: start: 20160621, end: 20160902
  2. DEXAMETHASONE. [Concomitant]
     Active Substance: DEXAMETHASONE
     Indication: PROPHYLAXIS
  3. MANNITOL. [Concomitant]
     Active Substance: MANNITOL
     Indication: PROPHYLAXIS
     Dosage: 100 ML, UNK
     Dates: start: 20160620, end: 20160823
  4. CISPLATIN. [Concomitant]
     Active Substance: CISPLATIN
     Dosage: 120 MG, UNK
     Dates: start: 20160620
  5. PALONOSETRON [Concomitant]
     Active Substance: PALONOSETRON
     Indication: PROPHYLAXIS
     Dosage: 0.25 MG, UNK
     Dates: start: 20160620, end: 20160823
  6. FOL [Concomitant]
     Dosage: 5 MG, UNK
     Dates: start: 20160620
  7. DARBEPOETIN ALFA [Suspect]
     Active Substance: DARBEPOETIN ALFA
     Indication: ANAEMIA OF MALIGNANT DISEASE
     Dosage: UNK UNK, Q3WK
     Route: 065
     Dates: start: 20160621, end: 20160824
  8. ZOBONE [Concomitant]
     Indication: METASTASES TO BONE
     Dosage: 4 MG, UNK
     Dates: start: 20160620, end: 20160823
  9. RANTAC [Concomitant]
     Active Substance: RANITIDINE HYDROCHLORIDE
     Indication: PROPHYLAXIS
     Dosage: 50 MG, BID
     Dates: start: 20160620, end: 20160902
  10. MAGNESIUM SULPHATE [Concomitant]
     Active Substance: MAGNESIUM SULFATE
     Indication: PROPHYLAXIS
     Dosage: 2 ML, UNK
     Dates: start: 20160620, end: 20160823
  11. APREPITANT. [Concomitant]
     Active Substance: APREPITANT
     Indication: PROPHYLAXIS
     Dosage: 80-125 MG, UNK
     Dates: start: 20160620, end: 20160825
  12. DOMPERIDONE [Concomitant]
     Active Substance: DOMPERIDONE
     Indication: PROPHYLAXIS
     Dosage: 10 MG, UNK
     Dates: start: 20160621, end: 20160825
  13. DEXAMETHASONE. [Concomitant]
     Active Substance: DEXAMETHASONE
     Indication: HEADACHE
     Dosage: 4-16 MG, UNK
     Route: 042
     Dates: start: 20160620, end: 20160902
  14. NORMAL SALINE [Concomitant]
     Active Substance: SODIUM CHLORIDE
     Indication: VEHICLE SOLUTION USE
     Dosage: 500 TO 1700 ML, UNK
     Dates: start: 20160620, end: 20160830
  15. POTASSIUM [Concomitant]
     Active Substance: POTASSIUM
     Indication: PROPHYLAXIS
     Dosage: 10 ML, UNK
     Dates: start: 20160620, end: 20160823
  16. PEMETREXED [Concomitant]
     Active Substance: PEMETREXED
     Dosage: 800 MG, UNK
  17. VITCOFOL [Concomitant]
     Dosage: 2 ML, UNK
     Dates: start: 20160620

REACTIONS (2)
  - Cerebral infarction [Not Recovered/Not Resolved]
  - Metastases to central nervous system [Not Recovered/Not Resolved]

NARRATIVE: CASE EVENT DATE: 20160830
